FAERS Safety Report 17165351 (Version 1)
Quarter: 2019Q4

REPORT INFORMATION
  Report Type: Report from Study
  Country: CO (occurrence: CO)
  Receive Date: 20191217
  Receipt Date: 20191217
  Transmission Date: 20200122
  Serious: Yes (Hospitalization, Other)
  Sender: FDA-Public Use
  Company Number: CO-JNJFOC-20160815694

PATIENT
  Age: 70 Year
  Sex: Male
  Weight: 54 kg

DRUGS (2)
  1. INSULIN GLARGINE [Concomitant]
     Active Substance: INSULIN GLARGINE
     Indication: DIABETES MELLITUS
  2. IMBRUVICA [Suspect]
     Active Substance: IBRUTINIB
     Indication: CHRONIC LYMPHOCYTIC LEUKAEMIA
     Route: 048
     Dates: start: 20160421, end: 20160818

REACTIONS (11)
  - Blood glucose increased [Recovering/Resolving]
  - Leukocytosis [Unknown]
  - Thrombocytopenia [Unknown]
  - Bacterial infection [Unknown]
  - Viral infection [Not Recovered/Not Resolved]
  - Papilloma excision [Unknown]
  - Vertigo [Recovered/Resolved]
  - Full blood count abnormal [Recovering/Resolving]
  - Herpes virus infection [Unknown]
  - Pulmonary alveolar haemorrhage [Unknown]
  - Constipation [Not Recovered/Not Resolved]

NARRATIVE: CASE EVENT DATE: 20160702
